FAERS Safety Report 10177287 (Version 1)
Quarter: 2014Q2

REPORT INFORMATION
  Report Type: Spontaneous
  Country: CN (occurrence: CN)
  Receive Date: 20140516
  Receipt Date: 20140516
  Transmission Date: 20141212
  Serious: Yes (Hospitalization)
  Sender: FDA-Public Use
  Company Number: CN-GLAXOSMITHKLINE-B0993223A

PATIENT
  Age: 10 Year
  Sex: Female
  Weight: 25 kg

DRUGS (1)
  1. SERETIDE [Suspect]
     Indication: ASTHMA
     Dosage: 1PUFF TWICE PER DAY
     Route: 055
     Dates: start: 201106, end: 201111

REACTIONS (6)
  - Concussion [Recovered/Resolved]
  - Drug administration error [Unknown]
  - Asthma [Unknown]
  - Overdose [Unknown]
  - Headache [Unknown]
  - Fall [Unknown]
